FAERS Safety Report 11111849 (Version 1)
Quarter: 2015Q2

REPORT INFORMATION
  Report Type: Report from Study
  Country: CA (occurrence: CA)
  Receive Date: 20150514
  Receipt Date: 20150514
  Transmission Date: 20150821
  Serious: Yes (Hospitalization, Other)
  Sender: FDA-Public Use
  Company Number: CA-ROCHE-1216584

PATIENT
  Age: 60 Year
  Sex: Female
  Weight: 100 kg

DRUGS (7)
  1. AVAPRO [Concomitant]
     Active Substance: IRBESARTAN
     Indication: BLOOD PRESSURE
  2. ACTEMRA [Suspect]
     Active Substance: TOCILIZUMAB
     Indication: RHEUMATOID ARTHRITIS
     Route: 042
     Dates: start: 20130123
  3. NAPROXEN. [Concomitant]
     Active Substance: NAPROXEN
  4. METHOTREXATE [Concomitant]
     Active Substance: METHOTREXATE
  5. FOLIC ACID. [Concomitant]
     Active Substance: FOLIC ACID
  6. TIAZAC (CANADA) [Concomitant]
     Indication: BLOOD PRESSURE
  7. NEXIUM [Concomitant]
     Active Substance: ESOMEPRAZOLE MAGNESIUM

REACTIONS (12)
  - Hepatic enzyme increased [Not Recovered/Not Resolved]
  - Vascular rupture [Unknown]
  - Haematochezia [Recovered/Resolved]
  - Nasopharyngitis [Recovering/Resolving]
  - Infusion related reaction [Unknown]
  - Polyarthritis [Unknown]
  - Diarrhoea [Unknown]
  - Weight increased [Not Recovered/Not Resolved]
  - Anxiety [Unknown]
  - Sinusitis [Recovered/Resolved]
  - Pancreatitis [Unknown]
  - Low density lipoprotein increased [Not Recovered/Not Resolved]

NARRATIVE: CASE EVENT DATE: 2014
